FAERS Safety Report 19666206 (Version 1)
Quarter: 2021Q3

REPORT INFORMATION
  Report Type: Spontaneous
  Country: US (occurrence: US)
  Receive Date: 20210806
  Receipt Date: 20210806
  Transmission Date: 20211014
  Serious: Yes (Other)
  Sender: FDA-Public Use
  Company Number: US-SA-2021SA258380

PATIENT
  Age: 21 Year
  Sex: Female

DRUGS (2)
  1. ZANTAC [Suspect]
     Active Substance: RANITIDINE HYDROCHLORIDE
     Indication: HYPERCHLORHYDRIA
  2. ZANTAC [Suspect]
     Active Substance: RANITIDINE HYDROCHLORIDE
     Indication: DYSPEPSIA
     Dosage: UNK, FREQUENCY: OTHER
     Dates: start: 198001, end: 201801

REACTIONS (8)
  - Gallbladder cancer [Unknown]
  - Skin cancer [Unknown]
  - Cervix carcinoma [Unknown]
  - Colorectal cancer [Unknown]
  - Renal cancer [Unknown]
  - Ovarian cancer [Unknown]
  - Gastrointestinal carcinoma [Unknown]
  - Small intestine carcinoma [Unknown]

NARRATIVE: CASE EVENT DATE: 19880301
